FAERS Safety Report 22528263 (Version 1)
Quarter: 2023Q2

REPORT INFORMATION
  Report Type: Spontaneous
  Country: ES (occurrence: ES)
  Receive Date: 20230607
  Receipt Date: 20230607
  Transmission Date: 20230722
  Serious: Yes (Life-Threatening, Hospitalization)
  Sender: FDA-Public Use
  Company Number: None

PATIENT
  Age: 15 Year
  Sex: Female
  Weight: 48 kg

DRUGS (2)
  1. ACETAMINOPHEN [Suspect]
     Active Substance: ACETAMINOPHEN
     Indication: Suicide attempt
     Dosage: 50 G, (1 TOTAL) (50 GRAMS IN SINGLE DOSE)
     Route: 048
     Dates: start: 20230516, end: 20230516
  2. ASPIRIN [Suspect]
     Active Substance: ASPIRIN
     Indication: Suicide attempt
     Dosage: UNK (10 TABLETS (500 MG OR 100 MG ASA UNKNOWN) AS A SINGLE DOSE)
     Route: 048
     Dates: start: 20230516, end: 20230516

REACTIONS (2)
  - Hypocoagulable state [Recovering/Resolving]
  - Hepatitis [Recovering/Resolving]

NARRATIVE: CASE EVENT DATE: 20230516
